FAERS Safety Report 9890896 (Version 2)
Quarter: 2014Q3

REPORT INFORMATION
  Report Type: Spontaneous
  Country: DK (occurrence: DK)
  Receive Date: 20140212
  Receipt Date: 20140922
  Transmission Date: 20150326
  Serious: Yes (Life-Threatening, Hospitalization, Other)
  Sender: FDA-Public Use
  Company Number: DK-ELI_LILLY_AND_COMPANY-DK201402002186

PATIENT
  Sex: Female

DRUGS (2)
  1. APYDAN [Concomitant]
     Active Substance: OXCARBAZEPINE
     Dosage: 1800 MG, UNKNOWN
     Route: 064
  2. FLUOXETINE [Suspect]
     Active Substance: FLUOXETINE\FLUOXETINE HYDROCHLORIDE
     Indication: DEPRESSION
     Dosage: 1 DF, UNKNOWN
     Route: 064
     Dates: end: 2005

REACTIONS (6)
  - Weight decrease neonatal [Unknown]
  - Balance disorder [Not Recovered/Not Resolved]
  - Cerebral haemorrhage foetal [Recovered/Resolved with Sequelae]
  - Abasia [Unknown]
  - Foetal exposure during pregnancy [Recovered/Resolved]
  - Motor dysfunction [Not Recovered/Not Resolved]
